FAERS Safety Report 8431755-7 (Version None)
Quarter: 2012Q2

REPORT INFORMATION
  Report Type: 
  Country: None (occurrence: None)
  Receive Date: 20120613
  Receipt Date: 20120605
  Transmission Date: 20120825
  Serious: Yes (Hospitalization)
  Sender: FDA-Public Use
  Company Number: US-ASTELLAS-2012US005283

PATIENT
  Sex: Male

DRUGS (1)
  1. PROGRAF [Suspect]
     Indication: NEPHROTIC SYNDROME
     Dosage: 3.5 MG, BID
     Route: 048

REACTIONS (2)
  - HOSPITALISATION [None]
  - OFF LABEL USE [None]
